FAERS Safety Report 12826562 (Version 1)
Quarter: 2016Q4

REPORT INFORMATION
  Report Type: Spontaneous
  Country: US (occurrence: US)
  Receive Date: 20161006
  Receipt Date: 20161006
  Transmission Date: 20170207
  Serious: No
  Sender: FDA-Public Use
  Company Number: US-JAZZ-2016-US-012803

PATIENT
  Sex: Female

DRUGS (60)
  1. ZYRTEC [Concomitant]
     Active Substance: CETIRIZINE HYDROCHLORIDE
  2. HYDROXYCHLOROQUINE [Concomitant]
     Active Substance: HYDROXYCHLOROQUINE
  3. PREDNISONE. [Concomitant]
     Active Substance: PREDNISONE
  4. CALCIUM CITRATE [Concomitant]
     Active Substance: CALCIUM CITRATE
  5. SODIUM CHLORIDE. [Concomitant]
     Active Substance: SODIUM CHLORIDE
  6. XYREM [Suspect]
     Active Substance: SODIUM OXYBATE
     Indication: CATAPLEXY
     Dosage: DOSE ADJUSTMENTS
     Route: 048
     Dates: start: 201002, end: 201507
  7. LINEZOLID. [Concomitant]
     Active Substance: LINEZOLID
  8. BACLOFEN. [Concomitant]
     Active Substance: BACLOFEN
  9. CIPRO [Concomitant]
     Active Substance: CIPROFLOXACIN HYDROCHLORIDE
  10. VITAMIN D3 [Concomitant]
     Active Substance: CHOLECALCIFEROL
  11. EXCEDRIN [Concomitant]
     Active Substance: ACETAMINOPHEN\ASPIRIN\CAFFEINE
  12. KLONOPIN [Concomitant]
     Active Substance: CLONAZEPAM
  13. XYREM [Suspect]
     Active Substance: SODIUM OXYBATE
     Indication: NARCOLEPSY
     Dosage: 1.5 G, BID
     Route: 048
     Dates: start: 200912, end: 201002
  14. SINGULAIR [Concomitant]
     Active Substance: MONTELUKAST SODIUM
  15. UROCIT-K [Concomitant]
     Active Substance: POTASSIUM CITRATE
  16. ZOFRAN [Concomitant]
     Active Substance: ONDANSETRON HYDROCHLORIDE
  17. DICYCLOMINE [Concomitant]
     Active Substance: DICYCLOMINE HYDROCHLORIDE
  18. FLAGYL [Concomitant]
     Active Substance: METRONIDAZOLE\METRONIDAZOLE HYDROCHLORIDE
  19. K-PHOS [Concomitant]
     Active Substance: POTASSIUM PHOSPHATE, MONOBASIC
  20. ALLEGRA [Concomitant]
     Active Substance: FEXOFENADINE HYDROCHLORIDE
  21. XYREM [Suspect]
     Active Substance: SODIUM OXYBATE
     Dosage: 4.25 G, BID
     Route: 048
     Dates: start: 201507
  22. TURMERIC [Concomitant]
     Active Substance: TURMERIC
  23. CELEBREX [Concomitant]
     Active Substance: CELECOXIB
  24. CLOBETASOL [Concomitant]
     Active Substance: CLOBETASOL
  25. PROAIR HFA [Concomitant]
     Active Substance: ALBUTEROL SULFATE
  26. RIFAXIMIN [Concomitant]
     Active Substance: RIFAXIMIN
  27. ZANAFLEX [Concomitant]
     Active Substance: TIZANIDINE HYDROCHLORIDE
  28. NUVARING [Concomitant]
     Active Substance: ETHINYL ESTRADIOL\ETONOGESTREL
  29. PROVIGIL [Concomitant]
     Active Substance: MODAFINIL
  30. SONATA [Concomitant]
     Active Substance: ZALEPLON
  31. VERAMYST [Concomitant]
     Active Substance: FLUTICASONE FUROATE
  32. CHLORHEXIDINE [Concomitant]
     Active Substance: CHLORHEXIDINE
  33. LANCETAN [Concomitant]
  34. HYDROMORPHONE [Concomitant]
     Active Substance: HYDROMORPHONE
  35. MORPHINE SULF [Concomitant]
     Active Substance: MORPHINE SULFATE
  36. NORCO [Concomitant]
     Active Substance: ACETAMINOPHEN\HYDROCODONE BITARTRATE
  37. POTASSIUM CITRATE. [Concomitant]
     Active Substance: POTASSIUM CITRATE
  38. PROTONIX [Concomitant]
     Active Substance: PANTOPRAZOLE SODIUM
  39. VOLTAREN [Concomitant]
     Active Substance: DICLOFENAC SODIUM
  40. GABAPENTIN. [Concomitant]
     Active Substance: GABAPENTIN
  41. HYDROCODONE [Concomitant]
     Active Substance: HYDROCODONE
  42. KCL [Concomitant]
     Active Substance: POTASSIUM CHLORIDE
  43. AUGMENTIN [Concomitant]
     Active Substance: AMOXICILLIN\CLAVULANATE POTASSIUM
  44. FLUTICASONE PROPIONATE. [Concomitant]
     Active Substance: FLUTICASONE PROPIONATE
  45. MIRENA [Concomitant]
     Active Substance: LEVONORGESTREL
  46. ZYVOX [Concomitant]
     Active Substance: LINEZOLID
  47. SPIRONOLACTONE. [Concomitant]
     Active Substance: SPIRONOLACTONE
  48. AMITIZA [Concomitant]
     Active Substance: LUBIPROSTONE
  49. CYTRA-2 [Concomitant]
     Active Substance: CITRIC ACID MONOHYDRATE\TRISODIUM CITRATE DIHYDRATE
  50. MILK OF MAGNESIA [Concomitant]
     Active Substance: MAGNESIUM HYDROXIDE
  51. MOMETASONE FUROATE. [Concomitant]
     Active Substance: MOMETASONE FUROATE
  52. OLOPATADINE [Concomitant]
     Active Substance: OLOPATADINE
  53. TOPAMAX [Concomitant]
     Active Substance: TOPIRAMATE
  54. QUINACRINE HYDROCHLORIDE [Concomitant]
     Active Substance: QUINACRINE HYDROCHLORIDE
  55. ALLEGRA D-12 HOUR [Concomitant]
     Active Substance: FEXOFENADINE HYDROCHLORIDE\PSEUDOEPHEDRINE HYDROCHLORIDE
  56. FLONASE [Concomitant]
     Active Substance: FLUTICASONE PROPIONATE
  57. NUVIGIL [Concomitant]
     Active Substance: ARMODAFINIL
  58. TOPIRAMATE. [Concomitant]
     Active Substance: TOPIRAMATE
  59. QUININE [Concomitant]
     Active Substance: QUININE
  60. DOXYCYCLINE HYCLATE. [Concomitant]
     Active Substance: DOXYCYCLINE HYCLATE

REACTIONS (3)
  - Fatigue [Unknown]
  - Speech disorder [Unknown]
  - Dysphemia [Unknown]
